FAERS Safety Report 7009043-5 (Version None)
Quarter: 2010Q3

REPORT INFORMATION
  Report Type: 
  Country: None (occurrence: None)
  Receive Date: 20100923
  Receipt Date: 20100807
  Transmission Date: 20110219
  Serious: No
  Sender: FDA-Public Use
  Company Number: US-BAYER-201040070GPV

PATIENT
  Age: 56 Year
  Sex: Male

DRUGS (2)
  1. SORAFENIB [Suspect]
     Indication: HEPATIC NEOPLASM MALIGNANT
  2. SORAFENIB [Suspect]
     Dosage: LOWER DOSE

REACTIONS (3)
  - DERMATITIS PSORIASIFORM [None]
  - RASH PUSTULAR [None]
  - SKIN PLAQUE [None]
